FAERS Safety Report 9264761 (Version 1)
Quarter: 2013Q2

REPORT INFORMATION
  Report Type: Spontaneous
  Country: US (occurrence: None)
  Receive Date: 20130426
  Receipt Date: 20130426
  Transmission Date: 20140414
  Serious: Yes (Other)
  Sender: FDA-Public Use
  Company Number: AUR-APL-2013-03441

PATIENT
  Sex: Female
  Weight: 63.49 kg

DRUGS (1)
  1. LISINOPRIL (LISINOPRIL) [Suspect]
     Indication: HYPERTENSION
     Dates: start: 2003

REACTIONS (3)
  - Muscle injury [None]
  - Cardiac disorder [None]
  - Renal disorder [None]
